FAERS Safety Report 23238337 (Version 3)
Quarter: 2023Q4

REPORT INFORMATION
  Report Type: Report from Study
  Country: TR (occurrence: TR)
  Receive Date: 20231129
  Receipt Date: 20231218
  Transmission Date: 20240110
  Serious: Yes (Hospitalization, Other)
  Sender: FDA-Public Use
  Company Number: TR-ABBVIE-5510347

PATIENT
  Age: 75 Year
  Sex: Male

DRUGS (2)
  1. CARBIDOPA\LEVODOPA [Suspect]
     Active Substance: CARBIDOPA\LEVODOPA
     Indication: Parkinson^s disease
     Dosage: MORNING DOSE (ML): 5.00 CONTINUOUS DOSE (ML): 4.50 EXTRA DOSE (ML): 1.00
     Route: 050
     Dates: start: 20231122
  2. CARBIDOPA\LEVODOPA [Suspect]
     Active Substance: CARBIDOPA\LEVODOPA
     Dosage: MORNING DOSE (ML): 6.50 CONTINUOUS DOSE (ML): 4.50 EXTRA DOSE (ML): 1.00
     Route: 050
     Dates: start: 20230928, end: 20231122

REACTIONS (3)
  - Dyskinesia [Not Recovered/Not Resolved]
  - Vertigo [Not Recovered/Not Resolved]
  - Carotid artery occlusion [Not Recovered/Not Resolved]

NARRATIVE: CASE EVENT DATE: 20231001
